FAERS Safety Report 12588569 (Version 2)
Quarter: 2016Q4

REPORT INFORMATION
  Report Type: Spontaneous
  Country: US (occurrence: US)
  Receive Date: 20160725
  Receipt Date: 20161014
  Transmission Date: 20170207
  Serious: No
  Sender: FDA-Public Use
  Company Number: US-JNJFOC-20160707177

PATIENT
  Age: 61 Year
  Sex: Female
  Weight: 54.43 kg

DRUGS (2)
  1. TYLENOL REGULAR STRENGTH [Suspect]
     Active Substance: ACETAMINOPHEN
     Indication: PAIN
     Dosage: 0.5 TABLET, 1-2 TIMES PER DAY
     Route: 048
  2. TYLENOL REGULAR STRENGTH [Suspect]
     Active Substance: ACETAMINOPHEN
     Indication: MIGRAINE
     Dosage: 0.5 TABLET, 1-2 TIMES PER DAY
     Route: 048

REACTIONS (1)
  - Wrong technique in product usage process [Unknown]
